FAERS Safety Report 7150702-1 (Version None)
Quarter: 2010Q4

REPORT INFORMATION
  Report Type: 
  Country: None (occurrence: None)
  Receive Date: 20101210
  Receipt Date: 20101203
  Transmission Date: 20110411
  Serious: Yes (Death, Other)
  Sender: FDA-Public Use
  Company Number: DE-GENZYME-CAMP-1001185

PATIENT

DRUGS (19)
  1. CAMPATH [Suspect]
     Indication: HEPATOSPLENIC T-CELL LYMPHOMA
     Dosage: 3 MG, QD ON DAY 1 OF CYCLE 1
     Route: 065
  2. CAMPATH [Suspect]
     Dosage: 10 MG, QD ON DAY 2 OF CYCLE 1
     Route: 065
  3. CAMPATH [Suspect]
     Dosage: 30 MG, QD ON DAY 3-4 OF CYCLE 1
     Route: 065
  4. CAMPATH [Suspect]
     Dosage: 10 MG, QD ON DAY 1 OF CYCLE 2
     Route: 065
  5. CAMPATH [Suspect]
     Dosage: 30 MG, QD ON DAY 2-3 OF CYCLE 2
     Route: 065
  6. FLUDARABINE PHOSPHATE [Suspect]
     Indication: HEPATOSPLENIC T-CELL LYMPHOMA
     Dosage: 25 MG/M2, QD ON DAY 2-4 OF CYCLE 1
     Route: 065
  7. FLUDARABINE PHOSPHATE [Suspect]
     Dosage: 25 MG/M2, QD ON DAY 1-3 OF CYCLE 2
     Route: 065
  8. CYCLOPHOSPHAMIDE [Suspect]
     Indication: HEPATOSPLENIC T-CELL LYMPHOMA
     Dosage: 600 MG/M2, QD ON DAY 3 OF CYCLE 1
     Route: 065
  9. CYCLOPHOSPHAMIDE [Suspect]
     Dosage: 600 MG/M2, QD ON DAY 2 OF CYCLE 2
     Route: 065
  10. DOXORUBICIN [Suspect]
     Indication: HEPATOSPLENIC T-CELL LYMPHOMA
     Dosage: 50 MG/M2, QD ON DAY 4 OF CYCLE 1
     Route: 065
  11. DOXORUBICIN [Suspect]
     Dosage: 50 MG/M2, QD ON DAY 3 OF CYCLE 2
     Route: 065
  12. CLEMASTINE FUMARATE [Concomitant]
     Indication: PREMEDICATION
     Dosage: 2 MG, QD ON DAY 1 OF EACH CYCLE
     Route: 042
  13. ACETAMINOPHEN [Concomitant]
     Indication: PREMEDICATION
     Dosage: 1 G, QD ON DAY 1 OF EACH CYCLE
     Route: 048
  14. PREDNISONE [Concomitant]
     Indication: PREMEDICATION
     Dosage: 50 MG, QD ON DAY 1 OF EACH CYCLE
     Route: 042
  15. PREDNISONE [Concomitant]
     Dosage: 50 MG, QD ON DAY 2-3 OF EACH CYCLE
     Route: 042
  16. SEROTONIN ANTAGONISTS [Concomitant]
     Indication: PREMEDICATION
     Dosage: UNK QD ON DAY 2 OF EACH CYCLE
     Route: 065
  17. SEROTONIN ANTAGONISTS [Concomitant]
     Dosage: UNK QD ON DAY 3 OF EACH CYCLE
     Route: 065
  18. TRIMETHOPRIM + SULFAMETHOXAZOLE [Concomitant]
     Indication: INFECTION PROPHYLAXIS
     Dosage: 960 MG, 3X/W
     Route: 065
  19. FAMCICLOVIR [Concomitant]
     Indication: INFECTION PROPHYLAXIS
     Dosage: 250 MG, BID
     Route: 065

REACTIONS (2)
  - CEREBRAL HAEMORRHAGE [None]
  - PANCYTOPENIA [None]
